FAERS Safety Report 8657886 (Version 2)
Quarter: 2012Q4

REPORT INFORMATION
  Report Type: 
  Country: GB (occurrence: GB)
  Receive Date: 20120710
  Receipt Date: 20121221
  Transmission Date: 20130627
  Serious: Yes (Other)
  Sender: FDA-Public Use
  Company Number: GB-PFIZER INC-2012160954

PATIENT
  Age: 33 Year
  Sex: Female
  Weight: 57.9 kg

DRUGS (2)
  1. CHAMPIX [Suspect]
     Indication: SMOKING CESSATION THERAPY
     Dosage: Full dose
     Dates: start: 20120421, end: 20120520
  2. INSULIN [Concomitant]
     Indication: DIABETES
     Dosage: Taking insulin for 22 years

REACTIONS (8)
  - Self-injurious ideation [Recovered/Resolved]
  - Mood swings [Recovered/Resolved]
  - Tension [Recovered/Resolved]
  - Feeling abnormal [Recovered/Resolved]
  - Crying [Recovered/Resolved]
  - Anger [Recovered/Resolved]
  - Headache [Recovered/Resolved]
  - Feeling of despair [Recovered/Resolved]
